FAERS Safety Report 10268429 (Version 2)
Quarter: 2014Q3

REPORT INFORMATION
  Report Type: Spontaneous
  Country: SG (occurrence: SG)
  Receive Date: 20140630
  Receipt Date: 20140709
  Transmission Date: 20150326
  Serious: Yes (Death, Hospitalization)
  Sender: FDA-Public Use
  Company Number: SG-BAXTER-2014BAX034326

PATIENT
  Sex: Female

DRUGS (2)
  1. DIANEAL LOW CALCIUM (2.5 MEQ/L) PERITONEAL DIALYSIS SOLUTION WITH  2.5 [Suspect]
     Active Substance: CALCIUM CHLORIDE\DEXTROSE\MAGNESIUM CHLORIDE\SODIUM CHLORIDE\SODIUM LACTATE
     Indication: PERITONEAL DIALYSIS
     Route: 033
  2. DIANEAL LOW CALCIUM PERITONEAL DIALYSIS SOLUTION WITH DEXTROSE [Suspect]
     Active Substance: CALCIUM CHLORIDE\DEXTROSE\MAGNESIUM CHLORIDE\SODIUM CHLORIDE\SODIUM LACTATE
     Indication: PERITONEAL DIALYSIS
     Route: 033

REACTIONS (3)
  - Sepsis [Fatal]
  - Drug ineffective [Unknown]
  - Catheter site infection [Unknown]
